FAERS Safety Report 5494163-7 (Version None)
Quarter: 2007Q4

REPORT INFORMATION
  Report Type: 
  Country: None (occurrence: None)
  Receive Date: 20071023
  Receipt Date: 20071023
  Transmission Date: 20080405
  Serious: Yes (Death, Life-Threatening, Hospitalization, Other)
  Sender: FDA-Public Use
  Company Number: None

PATIENT

DRUGS (2)
  1. ASPIRIN [Suspect]
     Indication: ANALGESIC THERAPY
     Dosage: 81MG PO
     Route: 048
  2. ASPIRIN [Suspect]
     Indication: ANTIPYRESIS
     Dosage: 81 MG PO

REACTIONS (2)
  - CIRCUMSTANCE OR INFORMATION CAPABLE OF LEADING TO MEDICATION ERROR [None]
  - MEDICATION ERROR [None]
